FAERS Safety Report 16959999 (Version 4)
Quarter: 2021Q1

REPORT INFORMATION
  Report Type: Report from Study
  Country: US (occurrence: US)
  Receive Date: 20191025
  Receipt Date: 20210208
  Transmission Date: 20210419
  Serious: Yes (Hospitalization)
  Sender: FDA-Public Use
  Company Number: US-ROCHE-2444253

PATIENT
  Age: 54 Year
  Sex: Male
  Weight: 71.7 kg

DRUGS (19)
  1. SULFAMETHOXAZOLE [Concomitant]
     Active Substance: SULFAMETHOXAZOLE
     Dosage: 800?160 MG
     Dates: start: 20190329
  2. PROCHLORPERAZINE. [Concomitant]
     Active Substance: PROCHLORPERAZINE
     Dates: start: 20190329
  3. LORATADINE. [Concomitant]
     Active Substance: LORATADINE
     Dates: start: 2019
  4. CYCLOPHOSPHAMIDE. [Suspect]
     Active Substance: CYCLOPHOSPHAMIDE
     Indication: LYMPHOMA
     Dosage: MOST RECENT DOSE ON 11/JUL/2019
     Route: 042
     Dates: start: 20190418
  5. OXYCODONE [Concomitant]
     Active Substance: OXYCODONE
  6. ACYCLOVIR. [Concomitant]
     Active Substance: ACYCLOVIR
  7. VENETOCLAX. [Suspect]
     Active Substance: VENETOCLAX
     Indication: LYMPHOMA
     Dosage: MOST RECENT DOSE ON 11/JUL/2019
     Route: 048
     Dates: start: 20190418
  8. RITUXIMAB. [Suspect]
     Active Substance: RITUXIMAB
     Indication: LYMPHOMA
     Dosage: MOST RECENT DOSE ON 11/JUL/2019
     Route: 042
     Dates: start: 20190418
  9. PREDNISONE. [Suspect]
     Active Substance: PREDNISONE
     Indication: LYMPHOMA
     Dosage: MOST RECENT DOSE ON 11/JUL/2019
     Route: 048
     Dates: start: 20190418
  10. DOXORUBICIN [Suspect]
     Active Substance: DOXORUBICIN
     Indication: LYMPHOMA
     Dosage: MOST RECENT DOSE ON 11/JUL/2019
     Route: 042
     Dates: start: 20190418
  11. LISINOPRIL. [Concomitant]
     Active Substance: LISINOPRIL
  12. IBUPROFEN. [Concomitant]
     Active Substance: IBUPROFEN
     Dates: start: 2019
  13. SENNA PLUS [Concomitant]
     Active Substance: DOCUSATE SODIUM\SENNOSIDES\SENNOSIDES A AND B
  14. VINCRISTINE [Suspect]
     Active Substance: VINCRISTINE
     Indication: LYMPHOMA
     Dosage: MOST RECENT DOSE ON 11/JUL/2019
     Route: 042
     Dates: start: 20190418
  15. ONDANSETRON [Concomitant]
     Active Substance: ONDANSETRON
     Dates: start: 20190329
  16. ETOPOSIDE. [Suspect]
     Active Substance: ETOPOSIDE
     Indication: LYMPHOMA
     Dosage: MOST RECENT DOSE ON 11/JUL/2019
     Route: 042
     Dates: start: 20190418
  17. ALLOPURINOL. [Concomitant]
     Active Substance: ALLOPURINOL
  18. VALGANCICLOVIR. [Concomitant]
     Active Substance: VALGANCICLOVIR
     Dates: start: 20190419
  19. TRIMIPRAMINE [Concomitant]
     Active Substance: TRIMIPRAMINE

REACTIONS (4)
  - Enteritis [Recovered/Resolved]
  - Abdominal pain [Recovered/Resolved]
  - Febrile neutropenia [Unknown]
  - Mesenteric panniculitis [Recovered/Resolved]

NARRATIVE: CASE EVENT DATE: 20190428
